FAERS Safety Report 5530994-2 (Version None)
Quarter: 2007Q4

REPORT INFORMATION
  Report Type: 
  Country: None (occurrence: None)
  Receive Date: 20071130
  Receipt Date: 20071119
  Transmission Date: 20080405
  Serious: Yes (Hospitalization, Other)
  Sender: FDA-Public Use
  Company Number: US-PFIZER INC-2007088907

PATIENT
  Sex: Female
  Weight: 90.3 kg

DRUGS (1)
  1. CHANTIX [Suspect]

REACTIONS (2)
  - INSOMNIA [None]
  - MANIA [None]
